FAERS Safety Report 21811076 (Version 1)
Quarter: 2022Q4

REPORT INFORMATION
  Report Type: Spontaneous
  Country: US (occurrence: None)
  Receive Date: 20221230
  Receipt Date: 20221230
  Transmission Date: 20230113
  Serious: No
  Sender: FDA-Public Use
  Company Number: None

PATIENT
  Sex: Male
  Weight: 69.85 kg

DRUGS (6)
  1. TEMOZOLOMIDE [Suspect]
     Active Substance: TEMOZOLOMIDE
     Indication: Brain neoplasm malignant
     Dosage: 280MG DAY 1-5 ORAL EVERY 4 WEEKS?
     Route: 050
  2. IBUPROFEN [Concomitant]
     Active Substance: IBUPROFEN
  3. KEPPRA [Concomitant]
     Active Substance: LEVETIRACETAM
  4. LACOSAMIDE [Concomitant]
     Active Substance: LACOSAMIDE
  5. Peochlorperazine [Concomitant]
  6. VIMPAT [Concomitant]
     Active Substance: LACOSAMIDE

REACTIONS (2)
  - General physical health deterioration [None]
  - Therapy cessation [None]
